FAERS Safety Report 5106486-1 (Version None)
Quarter: 2006Q3

REPORT INFORMATION
  Report Type: 
  Country: None (occurrence: None)
  Receive Date: 20060912
  Receipt Date: 20060818
  Transmission Date: 20061208
  Serious: Yes (Other)
  Sender: FDA-Public Use
  Company Number: 2005027211

PATIENT
  Age: 62 Year
  Sex: Male
  Weight: 113.3993 kg

DRUGS (11)
  1. CELEBREX [Suspect]
     Indication: ARTHRITIS
     Dosage: 400 MG (200 MG, 2 IN 1 D), ORAL
     Route: 048
  2. IBUPROFEN [Suspect]
     Indication: ARTHRITIS
     Dosage: 2400 MG (800 MG, 3 IN 1 D), ORAL
     Route: 048
     Dates: start: 20050101, end: 20050101
  3. PRAZOSIN HCL [Concomitant]
  4. RANITIDINE [Concomitant]
  5. SIMVASTATIN [Concomitant]
  6. FUROSEMIDE [Concomitant]
  7. ATENOLOL [Concomitant]
  8. LISINOPRIL [Concomitant]
  9. FELODIPINE [Concomitant]
  10. FENTANYL [Concomitant]
  11. ASPIRIN [Concomitant]

REACTIONS (7)
  - ANGIOGRAM ABNORMAL [None]
  - CARDIAC DISORDER [None]
  - DRUG INEFFECTIVE [None]
  - DYSPNOEA [None]
  - MEMORY IMPAIRMENT [None]
  - PAIN [None]
  - STOMACH DISCOMFORT [None]
